FAERS Safety Report 5255571-2 (Version None)
Quarter: 2007Q1

REPORT INFORMATION
  Report Type: 
  Country: None (occurrence: None)
  Receive Date: 20070305
  Receipt Date: 20070226
  Transmission Date: 20070707
  Serious: Yes (Life-Threatening)
  Sender: FDA-Public Use
  Company Number: 2006AP06022

PATIENT
  Age: 50 Year
  Sex: Female

DRUGS (2)
  1. TENORMIN [Suspect]
     Dosage: 30 * 50 MG TABLETS
     Route: 048
     Dates: start: 20061111, end: 20061111
  2. ADALAT [Suspect]
     Dosage: 30 * 20 MG TABLETS
     Route: 048
     Dates: start: 20061111, end: 20061111

REACTIONS (4)
  - DRUG TOXICITY [None]
  - HYPOTENSION [None]
  - INTENTIONAL OVERDOSE [None]
  - SUICIDE ATTEMPT [None]
